FAERS Safety Report 5146380-3 (Version None)
Quarter: 2006Q4

REPORT INFORMATION
  Report Type: 
  Country: None (occurrence: None)
  Receive Date: 20061108
  Receipt Date: 20061102
  Transmission Date: 20070319
  Serious: Yes (Hospitalization)
  Sender: FDA-Public Use
  Company Number: GB-ROXANE LABORATORIES, INC-2006-BP-12834RO

PATIENT
  Age: 43 Year
  Sex: Male

DRUGS (10)
  1. CYCLOPHOSPHAMIDE [Suspect]
     Indication: BURKITT'S LYMPHOMA
     Dates: start: 19980401, end: 19980901
  2. METHOTREXATE [Suspect]
     Indication: BURKITT'S LYMPHOMA
     Route: 037
     Dates: start: 19980401, end: 19980901
  3. DOXORUBICIN HCL [Suspect]
     Indication: BURKITT'S LYMPHOMA
     Dates: start: 19980401, end: 19980901
  4. VINCRISTINE [Suspect]
     Indication: BURKITT'S LYMPHOMA
     Dates: start: 19980401, end: 19980901
  5. PREDNISOLONE [Suspect]
     Indication: BURKITT'S LYMPHOMA
     Dates: start: 19980401, end: 19980901
  6. CYTOSINE ARABINOSIDE [Suspect]
     Indication: BURKITT'S LYMPHOMA
     Dates: start: 19980401, end: 19980901
  7. HYDROXYCORTISONE [Suspect]
     Indication: BURKITT'S LYMPHOMA
     Dates: start: 19980401, end: 19980901
  8. RITONAVIR [Suspect]
     Indication: HIV INFECTION
     Route: 048
     Dates: start: 19980401
  9. SAQUINAVIR [Suspect]
     Indication: HIV INFECTION
     Route: 048
     Dates: start: 19980401
  10. CO-TRIMAZOLE [Concomitant]
     Indication: ANTIFUNGAL PROPHYLAXIS

REACTIONS (6)
  - BACK PAIN [None]
  - BLOOD CHOLESTEROL INCREASED [None]
  - BLOOD TRIGLYCERIDES INCREASED [None]
  - COMPRESSION FRACTURE [None]
  - OSTEONECROSIS [None]
  - OSTEOPOROSIS [None]
